FAERS Safety Report 5699360-3 (Version None)
Quarter: 2008Q2

REPORT INFORMATION
  Report Type: 
  Country: None (occurrence: None)
  Receive Date: 20080404
  Receipt Date: 20080331
  Transmission Date: 20081010
  Serious: Yes (Death)
  Sender: FDA-Public Use
  Company Number: 2008-174539-NL

PATIENT
  Age: 20 Year
  Sex: Male

DRUGS (11)
  1. MIRTAZAPINE [Suspect]
     Indication: ANXIETY DISORDER
     Dosage: 15 MG QD/30 MG QD ORAL
     Route: 048
     Dates: start: 20070301, end: 20070303
  2. MIRTAZAPINE [Suspect]
     Indication: ANXIETY DISORDER
     Dosage: 15 MG QD/30 MG QD ORAL
     Route: 048
     Dates: start: 20070227
  3. METHADONE HCL [Suspect]
     Indication: MENTAL DISORDER
     Dosage: 15 MG/ 30 MG ORAL
     Route: 048
     Dates: start: 20070302, end: 20070302
  4. METHADONE HCL [Suspect]
     Indication: MENTAL DISORDER
     Dosage: 15 MG/ 30 MG ORAL
     Route: 048
     Dates: start: 20070303, end: 20070303
  5. OLANZAPINE [Suspect]
     Indication: ANXIETY DISORDER
     Dosage: 20 MG ORAL
     Route: 048
     Dates: start: 20070130, end: 20070303
  6. LORAZEPAM [Suspect]
     Indication: ANXIETY DISORDER
     Dosage: 1 MG BID/3.5 MG, 5 MG ORAL
     Route: 048
     Dates: start: 20070302, end: 20070303
  7. LORAZEPAM [Suspect]
     Indication: ANXIETY DISORDER
     Dosage: 1 MG BID/3.5 MG, 5 MG ORAL
     Route: 048
     Dates: start: 20070227
  8. LORAZEPAM [Suspect]
     Indication: ANXIETY DISORDER
     Dosage: 1 MG BID/3.5 MG, 5 MG ORAL
     Route: 048
     Dates: start: 20070301
  9. LEVOMEPROMAZINE [Suspect]
     Indication: ANXIETY DISORDER
     Dosage: 25 MG QD ORAL
     Route: 048
     Dates: start: 20070130, end: 20070303
  10. PARACETAMOL [Concomitant]
  11. NICOTINE [Concomitant]

REACTIONS (8)
  - ANXIETY [None]
  - CARDIAC ARREST [None]
  - DRUG INTERACTION [None]
  - HEADACHE [None]
  - LONG QT SYNDROME [None]
  - LOSS OF CONSCIOUSNESS [None]
  - SOMNOLENCE [None]
  - SUICIDAL IDEATION [None]
